FAERS Safety Report 7773139-0 (Version None)
Quarter: 2011Q3

REPORT INFORMATION
  Report Type: 
  Country: None (occurrence: None)
  Receive Date: 20110922
  Receipt Date: 20101103
  Transmission Date: 20111222
  Serious: No
  Sender: FDA-Public Use
  Company Number: US-ASTRAZENECA-2010SE52314

PATIENT
  Sex: Male

DRUGS (15)
  1. SEROQUEL [Suspect]
     Indication: BIPOLAR DISORDER
     Route: 048
  2. TYLENOL-500 [Concomitant]
     Indication: PAIN
  3. SPIRONOLACTONE [Concomitant]
  4. LASIX [Concomitant]
  5. TYLENOL-500 [Concomitant]
     Indication: HEADACHE
  6. KLOR-CON [Concomitant]
  7. LISINOPRIL [Concomitant]
  8. LEVOTHYROXINE SODIUM [Concomitant]
  9. MITIDRINE [Concomitant]
  10. DIVALPROEX SODIUM [Concomitant]
  11. MUCINEX [Concomitant]
     Dosage: PRN
  12. EXOLON PATCH [Concomitant]
  13. OMEPRAZOLE [Concomitant]
  14. FOLIC ACID [Concomitant]
  15. DIGOXIN [Concomitant]

REACTIONS (2)
  - DYSPHAGIA [None]
  - WRONG TECHNIQUE IN DRUG USAGE PROCESS [None]
